FAERS Safety Report 9382188 (Version 2)
Quarter: 2013Q3

REPORT INFORMATION
  Report Type: Spontaneous
  Country: CA (occurrence: CA)
  Receive Date: 20130703
  Receipt Date: 20130715
  Transmission Date: 20140515
  Serious: Yes (Death, Hospitalization, Other)
  Sender: FDA-Public Use
  Company Number: CA-AMGEN-CANSP2013046279

PATIENT
  Age: 74 Year
  Sex: Female

DRUGS (3)
  1. ENBREL [Suspect]
     Indication: RHEUMATOID ARTHRITIS
     Dosage: 50 MG, QWK
     Route: 058
     Dates: start: 20100503, end: 20130517
  2. PREDNISONE [Concomitant]
     Dosage: UNK
  3. SULFASALAZINE [Concomitant]
     Dosage: 500 MG, QID

REACTIONS (8)
  - Sepsis [Fatal]
  - Ischaemic stroke [Fatal]
  - Aortic stenosis [Unknown]
  - Mitral valve stenosis [Unknown]
  - Intracardiac thrombus [Unknown]
  - Cerebral infarction [Unknown]
  - Atrial fibrillation [Unknown]
  - Diabetes mellitus [Unknown]
